FAERS Safety Report 8297338 (Version 2)
Quarter: 2013Q2

REPORT INFORMATION
  Report Type: Report from Study
  Country: FR (occurrence: FR)
  Receive Date: 20111216
  Receipt Date: 20130627
  Transmission Date: 20140414
  Serious: Yes (Other)
  Sender: FDA-Public Use
  Company Number: FR-ROCHE-1021494

PATIENT
  Age: 85 Year
  Sex: Female

DRUGS (5)
  1. RITUXIMAB [Suspect]
     Indication: CHRONIC LYMPHOCYTIC LEUKAEMIA
     Route: 041
     Dates: start: 20080603, end: 20080826
  2. FLUDARABINE [Suspect]
     Indication: CHRONIC LYMPHOCYTIC LEUKAEMIA
     Route: 002
     Dates: start: 20080603, end: 20080828
  3. CYCLOPHOSPHAMIDE [Suspect]
     Indication: CHRONIC LYMPHOCYTIC LEUKAEMIA
     Route: 002
     Dates: start: 20080603, end: 20080828
  4. BACTRIM FORTE [Concomitant]
     Route: 002
     Dates: start: 20080603
  5. ZELITREX [Concomitant]
     Route: 002
     Dates: start: 20080603

REACTIONS (2)
  - Hair follicle tumour benign [Recovered/Resolved]
  - Bowen^s disease [Recovered/Resolved]
